FAERS Safety Report 10874087 (Version 1)
Quarter: 2015Q1

REPORT INFORMATION
  Report Type: Spontaneous
  Country: US (occurrence: US)
  Receive Date: 20150227
  Receipt Date: 20150227
  Transmission Date: 20150721
  Serious: Yes (Other)
  Sender: FDA-Public Use
  Company Number: US-TEVA-544055USA

PATIENT
  Age: 17 Year
  Sex: Female
  Weight: 72.64 kg

DRUGS (1)
  1. PARAGARD T 380A [Suspect]
     Active Substance: COPPER
     Indication: CONTRACEPTION
     Route: 015
     Dates: start: 20141121, end: 20141121

REACTIONS (2)
  - Uterine perforation [Recovered/Resolved]
  - Uterine pain [Recovered/Resolved]

NARRATIVE: CASE EVENT DATE: 20141121
